FAERS Safety Report 7812698-6 (Version None)
Quarter: 2011Q4

REPORT INFORMATION
  Report Type: 
  Country: None (occurrence: None)
  Receive Date: 20111013
  Receipt Date: 20110930
  Transmission Date: 20120403
  Serious: Yes (Death, Hospitalization)
  Sender: FDA-Public Use
  Company Number: CH-ELI_LILLY_AND_COMPANY-CH201110000143

PATIENT
  Age: 20 Year
  Sex: Male

DRUGS (4)
  1. ESCITALOPRAM [Concomitant]
     Dosage: 5 -10 MG, QD
     Route: 048
     Dates: start: 20101026, end: 20110223
  2. ZYPREXA [Suspect]
     Dosage: 20 MG, QD
     Dates: start: 20101105, end: 20110523
  3. ZYPREXA [Suspect]
     Dosage: 5-15 MG, QD
     Dates: start: 20101004, end: 20101104
  4. ESCITALOPRAM [Concomitant]
     Dosage: 20 MG, QD
     Route: 048
     Dates: start: 20110224, end: 20110523

REACTIONS (6)
  - AGGRESSION [None]
  - COMPLETED SUICIDE [None]
  - SUICIDAL IDEATION [None]
  - HALLUCINATION, AUDITORY [None]
  - INTENTIONAL SELF-INJURY [None]
  - PSYCHOTIC DISORDER [None]
